FAERS Safety Report 5512528-1 (Version None)
Quarter: 2007Q4

REPORT INFORMATION
  Report Type: 
  Country: None (occurrence: None)
  Receive Date: 20071112
  Receipt Date: 20070619
  Transmission Date: 20080405
  Serious: No
  Sender: FDA-Public Use
  Company Number: A0658233A

PATIENT
  Age: 82 Year
  Sex: Male

DRUGS (5)
  1. AVANDAMET [Suspect]
     Indication: DRUG USE FOR UNKNOWN INDICATION
     Dosage: 1TAB TWICE PER DAY
     Route: 048
     Dates: start: 20070313, end: 20070401
  2. PLAVIX [Concomitant]
  3. STATINS [Concomitant]
  4. METOPROLOL TARTRATE [Concomitant]
  5. FLOMAX [Concomitant]

REACTIONS (1)
  - DYSGEUSIA [None]
